FAERS Safety Report 4297240-1 (Version None)
Quarter: 2004Q1

REPORT INFORMATION
  Report Type: 
  Country: None (occurrence: None)
  Receive Date: 20040213
  Receipt Date: 20040129
  Transmission Date: 20041129
  Serious: Yes (Other)
  Sender: FDA-Public Use
  Company Number: 04-029-2133

PATIENT
  Age: 79 Year
  Sex: Male

DRUGS (4)
  1. VALPROATE SODIUM [Suspect]
     Indication: STATUS EPILEPTICUS
     Dosage: 1750 MG IV
     Route: 042
     Dates: start: 20040101
  2. PROPOFOL [Concomitant]
  3. MEROPENEM [Concomitant]
  4. CARBAMAZEPINE [Concomitant]

REACTIONS (4)
  - CONVULSION [None]
  - CONVULSIVE THRESHOLD LOWERED [None]
  - DRUG LEVEL BELOW THERAPEUTIC [None]
  - PHARMACEUTICAL PRODUCT COMPLAINT [None]
